FAERS Safety Report 21715501 (Version 1)
Quarter: 2022Q4

REPORT INFORMATION
  Report Type: Spontaneous
  Country: US (occurrence: None)
  Receive Date: 20221209
  Receipt Date: 20221209
  Transmission Date: 20230113
  Serious: Yes (Disabling)
  Sender: FDA-Public Use
  Company Number: None

PATIENT
  Age: 59 Year
  Sex: Female
  Weight: 157.5 kg

DRUGS (1)
  1. VILAZODONE [Suspect]
     Active Substance: VILAZODONE
     Indication: Depression
     Dosage: OTHER QUANTITY : 1 TABLET(S);?FREQUENCY : DAILY;?
     Route: 048
     Dates: start: 20221201, end: 20221209

REACTIONS (7)
  - Hallucination [None]
  - Night sweats [None]
  - Sleep terror [None]
  - Headache [None]
  - Diarrhoea [None]
  - Abdominal pain upper [None]
  - Feeling abnormal [None]

NARRATIVE: CASE EVENT DATE: 20221205
